FAERS Safety Report 10100433 (Version 5)
Quarter: 2017Q1

REPORT INFORMATION
  Report Type: Spontaneous
  Country: JP (occurrence: JP)
  Receive Date: 20140423
  Receipt Date: 20170213
  Transmission Date: 20170428
  Serious: Yes (Death, Hospitalization, Disabling, Other)
  Sender: FDA-Public Use
  Company Number: JP-ALLERGAN-1408104US

PATIENT
  Age: 24 Year
  Sex: Male

DRUGS (6)
  1. EPENARD [Concomitant]
     Indication: TORTICOLLIS
     Dosage: 50 MG, TID
     Route: 048
  2. BOTOX [Suspect]
     Active Substance: ONABOTULINUMTOXINA
     Dosage: UNK, SINGLE
     Route: 030
     Dates: start: 20080229, end: 20080229
  3. DEPAS [Concomitant]
     Active Substance: ETIZOLAM
     Indication: TORTICOLLIS
     Dosage: 1 MG, BID
     Route: 048
  4. BOTOX [Suspect]
     Active Substance: ONABOTULINUMTOXINA
     Indication: TORTICOLLIS
     Dosage: 215 UNITS, SINGLE
     Dates: start: 20140123, end: 20140123
  5. MYONAL [Concomitant]
     Active Substance: EPERISONE HYDROCHLORIDE
     Indication: TORTICOLLIS
     Dosage: 50 MG, TID
     Route: 048
     Dates: start: 20131004
  6. BOTOX [Suspect]
     Active Substance: ONABOTULINUMTOXINA
     Dosage: 200 UNITS, SINGLE
     Dates: start: 20130123, end: 20130123

REACTIONS (12)
  - Oxygen saturation decreased [Unknown]
  - Respiration abnormal [Unknown]
  - Aspiration [Unknown]
  - Hypotonia [Unknown]
  - Mouth breathing [Unknown]
  - Device dislocation [Unknown]
  - Bronchial obstruction [Unknown]
  - Laryngeal injury [Unknown]
  - Epiglottic erythema [Recovered/Resolved]
  - Acute respiratory failure [Recovered/Resolved with Sequelae]
  - Respiratory failure [Fatal]
  - Epiglottis ulcer [Recovered/Resolved]

NARRATIVE: CASE EVENT DATE: 2013
